FAERS Safety Report 10481087 (Version 4)
Quarter: 2014Q4

REPORT INFORMATION
  Report Type: Spontaneous
  Country: US (occurrence: US)
  Receive Date: 20140929
  Receipt Date: 20141222
  Transmission Date: 20150528
  Serious: No
  Sender: FDA-Public Use
  Company Number: US-PFIZER INC-2014267849

PATIENT
  Sex: Male

DRUGS (1)
  1. LYRICA [Suspect]
     Active Substance: PREGABALIN
     Dosage: UNK
     Dates: start: 201409

REACTIONS (4)
  - Feeling abnormal [Unknown]
  - Sexual dysfunction [Unknown]
  - Anxiety [Unknown]
  - Libido decreased [Unknown]

NARRATIVE: CASE EVENT DATE: 201409
